FAERS Safety Report 6691762-1 (Version None)
Quarter: 2010Q2

REPORT INFORMATION
  Report Type: 
  Country: None (occurrence: None)
  Receive Date: 20100422
  Receipt Date: 20090504
  Transmission Date: 20101027
  Serious: No
  Sender: FDA-Public Use
  Company Number: US-ASTRAZENECA-2009UW11283

PATIENT
  Age: 76 Year
  Sex: Female
  Weight: 63.5 kg

DRUGS (2)
  1. METOPROLOL SUCCINATE [Suspect]
     Indication: EXTRASYSTOLES
     Route: 048
  2. METOPROLOL SUCCINATE [Suspect]
     Indication: PALPITATIONS
     Route: 048

REACTIONS (2)
  - EXTRASYSTOLES [None]
  - PALPITATIONS [None]
